FAERS Safety Report 6332377-4 (Version None)
Quarter: 2009Q3

REPORT INFORMATION
  Report Type: 
  Country: None (occurrence: None)
  Receive Date: 20090827
  Receipt Date: 20090827
  Transmission Date: 20100115
  Serious: Yes (Disabling)
  Sender: FDA-Public Use
  Company Number: None

PATIENT
  Age: 28 Year
  Sex: Female
  Weight: 83.9154 kg

DRUGS (1)
  1. MIRENA [Suspect]
     Indication: CONTRACEPTION
     Dosage: 1 5 YEARS INTRA-UTERINE
     Route: 015
     Dates: start: 20080131, end: 20090829

REACTIONS (16)
  - ACNE [None]
  - ALOPECIA [None]
  - ANXIETY [None]
  - APHASIA [None]
  - BACK PAIN [None]
  - DEPRESSION [None]
  - DISCOMFORT [None]
  - HEADACHE [None]
  - INSOMNIA [None]
  - LETHARGY [None]
  - MOOD SWINGS [None]
  - PALPITATIONS [None]
  - QUALITY OF LIFE DECREASED [None]
  - SEBORRHOEA [None]
  - SKIN ODOUR ABNORMAL [None]
  - WEIGHT INCREASED [None]
